FAERS Safety Report 5412975-2 (Version None)
Quarter: 2007Q3

REPORT INFORMATION
  Report Type: 
  Country: None (occurrence: None)
  Receive Date: 20070813
  Receipt Date: 20070803
  Transmission Date: 20080115
  Serious: Yes (Other)
  Sender: FDA-Public Use
  Company Number: US-PFIZER INC-2007047691

PATIENT
  Sex: Female
  Weight: 68.9 kg

DRUGS (3)
  1. LIPITOR [Suspect]
     Indication: BLOOD CHOLESTEROL INCREASED
     Dates: start: 20070201, end: 20070501
  2. FOSAMAX [Concomitant]
     Indication: OSTEOPOROSIS
  3. TOPROL-XL [Concomitant]

REACTIONS (3)
  - BURNING SENSATION [None]
  - NEURITIS [None]
  - URINARY TRACT DISORDER [None]
